FAERS Safety Report 8005619-7 (Version None)
Quarter: 2011Q4

REPORT INFORMATION
  Report Type: 
  Country: None (occurrence: None)
  Receive Date: 20111223
  Receipt Date: 20111220
  Transmission Date: 20120403
  Serious: Yes (Life-Threatening, Hospitalization)
  Sender: FDA-Public Use
  Company Number: US-JNJFOC-20111209687

PATIENT
  Sex: Male

DRUGS (12)
  1. IFOSFAMIDE [Suspect]
     Indication: SARCOMA
     Route: 042
     Dates: start: 20011002
  2. CISPLATIN [Suspect]
     Indication: SARCOMA
     Route: 042
     Dates: start: 20011002
  3. METHOTREXATE [Suspect]
     Indication: SARCOMA
     Route: 042
     Dates: start: 20011002
  4. DOXORUBICIN HCL [Suspect]
     Indication: SARCOMA
     Route: 042
     Dates: start: 20011002
  5. TRASTUZUMAB [Suspect]
     Indication: SARCOMA
     Dosage: OVER 90 MINUTES ON DAY 1, EVERY WEEK FOR 37 WEEKS
     Route: 042
     Dates: start: 20011002
  6. MESNA [Suspect]
     Route: 042
  7. FILGRASTIM [Suspect]
     Indication: SARCOMA
     Dosage: THEN OVER 15 MINUTES AT HOURS 8,11,14 POST INFOSAMIDE AT 1.8 G/M2 OVER 4 HOURS DAILY FOR 5 DAYS
     Route: 058
     Dates: start: 20011002
  8. LEUCOVORIN CALCIUM [Suspect]
     Indication: SARCOMA
     Route: 048
     Dates: start: 20011002
  9. ETOPOSIDE [Suspect]
     Indication: SARCOMA
     Dosage: THEN OVER 15 MINUTES AT HOURS 8,11,14 POST INFOSAMIDE AT 1.8 G/M2 OVER 4 HOURS DAILY FOR 5 DAYS
     Route: 042
     Dates: start: 20011002
  10. TRASTUZUMAB [Suspect]
     Dosage: ON DAY 1(LOADING DOSE)
     Route: 042
     Dates: start: 20011002
  11. DEXRAZOXANE HYDROCHLORIDE [Suspect]
     Indication: SARCOMA
     Route: 042
     Dates: start: 20011002
  12. MESNA [Suspect]
     Indication: SARCOMA
     Dosage: THEN OVER 15 MINUTES AT HOURS 8,11,14 POST INFOSAMIDE AT 1.8 G/M2 OVER 4 HOURS DAILY FOR 5 DAYS
     Route: 042
     Dates: start: 20011002

REACTIONS (15)
  - PYREXIA [None]
  - NEUTROPENIC INFECTION [None]
  - DIARRHOEA [None]
  - VOMITING [None]
  - RHINORRHOEA [None]
  - IRRITABILITY [None]
  - CANDIDA TEST POSITIVE [None]
  - PAIN [None]
  - TACHYPNOEA [None]
  - COUGH [None]
  - SEPTIC SHOCK [None]
  - TACHYCARDIA [None]
  - FEELING HOT [None]
  - ESCHERICHIA TEST POSITIVE [None]
  - INFECTION [None]
